FAERS Safety Report 8992066 (Version 2)
Quarter: 2013Q1

REPORT INFORMATION
  Report Type: Spontaneous
  Country: ES (occurrence: ES)
  Receive Date: 20121231
  Receipt Date: 20130211
  Transmission Date: 20140127
  Serious: Yes (Other)
  Sender: FDA-Public Use
  Company Number: PHHY2012ES120369

PATIENT
  Age: 82 Year
  Sex: Female

DRUGS (4)
  1. RIPRAZO [Suspect]
     Indication: HYPERTENSION
     Dosage: 150 MG, DAILY
     Route: 048
     Dates: start: 2012, end: 20121121
  2. OLMETEC PLUS [Interacting]
     Indication: HYPERTENSION
     Dosage: 1 DF (40 MG OLME AND 25 MG HCTZ)
     Route: 048
     Dates: start: 2012, end: 20121121
  3. NSAID^S [Interacting]
  4. PARACETAMOL [Concomitant]

REACTIONS (2)
  - Renal failure acute [Recovering/Resolving]
  - Drug interaction [Unknown]
